FAERS Safety Report 4513264-0 (Version None)
Quarter: 2004Q4

REPORT INFORMATION
  Report Type: 
  Country: None (occurrence: None)
  Receive Date: 20041130
  Receipt Date: 20041123
  Transmission Date: 20050328
  Serious: Yes (Life-Threatening, Disabling)
  Sender: FDA-Public Use
  Company Number: IT-ROCHE-387095

PATIENT
  Age: 30 Year
  Sex: Female

DRUGS (2)
  1. PEGASYS [Suspect]
     Indication: CHRONIC HEPATITIS
     Dosage: FORM REPORTED AS VIAL.
     Route: 058
     Dates: start: 20040710, end: 20041029
  2. COPEGUS [Suspect]
     Indication: CHRONIC HEPATITIS
     Route: 048
     Dates: start: 20040710, end: 20041029

REACTIONS (3)
  - HEPATIC FAILURE [None]
  - JAUNDICE [None]
  - ORGAN TRANSPLANT [None]
